FAERS Safety Report 17745541 (Version 3)
Quarter: 2020Q2

REPORT INFORMATION
  Report Type: Spontaneous
  Country: US (occurrence: US)
  Receive Date: 20200505
  Receipt Date: 20200521
  Transmission Date: 20200714
  Serious: Yes (Other)
  Sender: FDA-Public Use
  Company Number: US-GLAXOSMITHKLINE-US2020AMR075392

PATIENT
  Sex: Female

DRUGS (2)
  1. ZEJULA [Suspect]
     Active Substance: NIRAPARIB
     Dosage: 200 MG, QD
     Dates: start: 20200427, end: 20200507
  2. ZEJULA [Suspect]
     Active Substance: NIRAPARIB
     Indication: OVARIAN CANCER
     Dosage: 200 MG
     Dates: start: 20200427

REACTIONS (13)
  - Renal impairment [Unknown]
  - Oropharyngeal pain [Unknown]
  - Limb discomfort [Unknown]
  - Lip dry [Unknown]
  - Decreased appetite [Unknown]
  - Dizziness [Unknown]
  - Oral mucosal blistering [Unknown]
  - Nausea [Unknown]
  - Off label use [Unknown]
  - Dry mouth [Unknown]
  - Constipation [Unknown]
  - Blood pressure increased [Unknown]
  - Drug intolerance [Unknown]
